FAERS Safety Report 20503638 (Version 1)
Quarter: 2022Q1

REPORT INFORMATION
  Report Type: Report from Study
  Country: CA (occurrence: CA)
  Receive Date: 20220222
  Receipt Date: 20220222
  Transmission Date: 20220423
  Serious: Yes (Other)
  Sender: FDA-Public Use
  Company Number: CA-JNJFOC-20211248443

PATIENT
  Age: 88 Year
  Sex: Female
  Weight: 59 kg

DRUGS (1)
  1. REMICADE [Suspect]
     Active Substance: INFLIXIMAB
     Indication: Crohn^s disease
     Dosage: LAST INFUSION: 26-OCT-2021. LAST INFUSION GIVEN: 21-DEC-2021 LAST INFUSION LOT NUMBER: LHM45013 ,EXP
     Route: 042

REACTIONS (3)
  - Retinal detachment [Recovering/Resolving]
  - Skin cancer [Unknown]
  - Central vision loss [Unknown]
